FAERS Safety Report 9610872 (Version 1)
Quarter: 2013Q4

REPORT INFORMATION
  Report Type: Spontaneous
  Country: CO (occurrence: CO)
  Receive Date: 20131009
  Receipt Date: 20131009
  Transmission Date: 20140711
  Serious: Yes (Hospitalization)
  Sender: FDA-Public Use
  Company Number: CO-PFIZER INC-2013285137

PATIENT
  Age: 72 Year
  Sex: Male

DRUGS (3)
  1. CARDURAN [Suspect]
     Indication: PROSTATIC DISORDER
     Dosage: 4 MG, 1X/DAY
     Route: 048
     Dates: start: 20130922
  2. SYNTHROID [Concomitant]
     Indication: THYROID DISORDER
     Dosage: 50 MG, 1X/DAY
     Route: 048
     Dates: start: 2007
  3. ESOMEPRAZOLE [Concomitant]
     Indication: REFLUX GASTRITIS
     Dosage: 40 MG, 1X/DAY
     Route: 048
     Dates: start: 2011

REACTIONS (2)
  - Prostatic disorder [Unknown]
  - Calculus bladder [Unknown]
